FAERS Safety Report 12165351 (Version 2)
Quarter: 2016Q1

REPORT INFORMATION
  Report Type: Spontaneous
  Country: US (occurrence: US)
  Receive Date: 20160309
  Receipt Date: 20160318
  Transmission Date: 20160526
  Serious: Yes (Other)
  Sender: FDA-Public Use
  Company Number: US-TEVA-640923USA

PATIENT
  Age: 16 Year
  Sex: Female

DRUGS (1)
  1. ZECUITY [Suspect]
     Active Substance: SUMATRIPTAN SUCCINATE
     Indication: MIGRAINE
     Dosage: 6.5 MG / 4 HOURS
     Route: 062
     Dates: start: 201512

REACTIONS (8)
  - Sunburn [Unknown]
  - Application site dryness [Unknown]
  - Application site vesicles [Unknown]
  - Application site urticaria [Recovered/Resolved]
  - Application site erythema [Unknown]
  - Application site exfoliation [Unknown]
  - Application site pain [Unknown]
  - Application site rash [Unknown]

NARRATIVE: CASE EVENT DATE: 201601
